FAERS Safety Report 12145265 (Version 1)
Quarter: 2016Q1

REPORT INFORMATION
  Report Type: Spontaneous
  Country: US (occurrence: None)
  Receive Date: 20160303
  Receipt Date: 20160303
  Transmission Date: 20160526
  Serious: Yes (Other)
  Sender: FDA-Public Use
  Company Number: None

PATIENT
  Age: 54 Year
  Sex: Male
  Weight: 0 kg

DRUGS (1)
  1. HUMIRA [Suspect]
     Active Substance: ADALIMUMAB
     Dosage: HUMIRA PEN 40MG INJECTABLE

REACTIONS (2)
  - Nasopharyngitis [None]
  - Nasal congestion [None]

NARRATIVE: CASE EVENT DATE: 20160214
